FAERS Safety Report 5300027-1 (Version None)
Quarter: 2007Q2

REPORT INFORMATION
  Report Type: 
  Country: None (occurrence: None)
  Receive Date: 20070410
  Receipt Date: 20070404
  Transmission Date: 20071010
  Serious: Yes (Hospitalization)
  Sender: FDA-Public Use
  Company Number: B0463323A

PATIENT
  Age: 77 Year
  Sex: Male

DRUGS (18)
  1. FORTAZ [Suspect]
     Indication: PSEUDOMONAS INFECTION
     Dosage: UNK / UNK / INTRAVENOUS
     Route: 042
     Dates: start: 20070214, end: 20070223
  2. CIPROFLOXACIN HCL [Concomitant]
  3. MIDAZOLAM HYDROCHLORIDE [Concomitant]
  4. SUFENTANIL CITRATE [Concomitant]
  5. AMIKACIN [Concomitant]
  6. PIPERACILLIN SODIUM [Concomitant]
  7. PARACETAMOL [Concomitant]
  8. URAPIDIL [Concomitant]
  9. NICARDIPINE HYDROCHLORIDE [Concomitant]
  10. HEPARIN [Concomitant]
  11. BUMETANIDE [Concomitant]
  12. AMIODARONE HYDROCHLORIDE [Concomitant]
  13. ESOMEPRAZOLE MAGNESIUM [Concomitant]
  14. FLUOXETINE HYDROCHLORIDE [Concomitant]
  15. LISINOPRIL [Concomitant]
  16. BISOPRODOL FUMARATE [Concomitant]
  17. PRAVASTATIN SODIUM [Concomitant]
  18. HEMODIALYSIS [Concomitant]

REACTIONS (3)
  - CEREBRAL CALCIFICATION [None]
  - ENCEPHALOPATHY [None]
  - ISCHAEMIA [None]
